FAERS Safety Report 7288904-6 (Version None)
Quarter: 2011Q1

REPORT INFORMATION
  Report Type: 
  Country: None (occurrence: None)
  Receive Date: 20110211
  Receipt Date: 20110201
  Transmission Date: 20110831
  Serious: Yes (Disabling)
  Sender: FDA-Public Use
  Company Number: GB-TEVA-266338ISR

PATIENT
  Age: 61 Year
  Sex: Male
  Weight: 94 kg

DRUGS (1)
  1. SIMVASTATIN [Suspect]
     Dates: start: 20100920

REACTIONS (2)
  - DYSURIA [None]
  - WEIGHT DECREASED [None]
